FAERS Safety Report 25021853 (Version 4)
Quarter: 2025Q4

REPORT INFORMATION
  Report Type: Spontaneous
  Country: US (occurrence: None)
  Receive Date: 20250228
  Receipt Date: 20251128
  Transmission Date: 20260118
  Serious: Yes (Life-Threatening, Hospitalization, Other)
  Sender: UCB
  Company Number: US-UCBSA-2025011337

PATIENT
  Age: 37 Year
  Weight: 55.3 kg

DRUGS (7)
  1. ZILBRYSQ [Suspect]
     Active Substance: ZILUCOPLAN
     Indication: Myasthenia gravis
     Dosage: 16.6 MILLIGRAM, ONCE DAILY (QD)
  2. ZILBRYSQ [Suspect]
     Active Substance: ZILUCOPLAN
     Dosage: 16.6 MILLIGRAM, ONCE DAILY (QD)
  3. ZILBRYSQ [Suspect]
     Active Substance: ZILUCOPLAN
     Dosage: 16.6 MILLIGRAM, ONCE DAILY (QD)
  4. PANTOPRAZOLE [Concomitant]
     Active Substance: PANTOPRAZOLE
     Indication: Product used for unknown indication
     Dosage: 40 MILLIGRAM
  5. PREDNISONE [Concomitant]
     Active Substance: PREDNISONE
     Indication: Product used for unknown indication
     Dosage: 20 MILLIGRAM
  6. CLONAZEPAM [Concomitant]
     Active Substance: CLONAZEPAM
     Indication: Product used for unknown indication
     Dosage: 0.5 MILLIGRAM
  7. ENOXAPARIN [Concomitant]
     Active Substance: ENOXAPARIN
     Indication: Product used for unknown indication
     Dosage: 60 MILLIGRAM

REACTIONS (11)
  - Myasthenia gravis crisis [Recovering/Resolving]
  - Hospitalisation [Recovering/Resolving]
  - Pneumonia [Unknown]
  - Sepsis [Unknown]
  - Choking [Recovering/Resolving]
  - Stress [Recovering/Resolving]
  - Treatment noncompliance [Unknown]
  - Product dose omission issue [Unknown]
  - Product availability issue [Unknown]
  - Therapy interrupted [Unknown]
  - Drug ineffective [Unknown]
